FAERS Safety Report 8404323-0 (Version None)
Quarter: 2012Q2

REPORT INFORMATION
  Report Type: 
  Country: None (occurrence: None)
  Receive Date: 20120601
  Receipt Date: 20120523
  Transmission Date: 20120825
  Serious: Yes (Hospitalization)
  Sender: FDA-Public Use
  Company Number: SZ-ASTRAZENECA-2012SE33626

PATIENT
  Age: 27 Year
  Sex: Female

DRUGS (4)
  1. ABILIFY [Suspect]
     Route: 048
  2. ZOMIG [Suspect]
     Indication: MIGRAINE
     Route: 048
     Dates: start: 20120425
  3. SURMONTIL [Suspect]
  4. LORAZEPAM [Concomitant]
     Route: 048

REACTIONS (6)
  - VISUAL IMPAIRMENT [None]
  - MIGRAINE [None]
  - VERTIGO [None]
  - TREMOR [None]
  - PRESYNCOPE [None]
  - NAUSEA [None]
